FAERS Safety Report 9719639 (Version 3)
Quarter: 2014Q1

REPORT INFORMATION
  Report Type: Report from Study
  Country: SK (occurrence: SK)
  Receive Date: 20131128
  Receipt Date: 20140327
  Transmission Date: 20141002
  Serious: Yes (Disabling, Other)
  Sender: FDA-Public Use
  Company Number: SK-ROCHE-1309018

PATIENT
  Age: 71 Year
  Sex: Male
  Weight: 65 kg

DRUGS (2)
  1. RANIBIZUMAB [Suspect]
     Indication: AGE-RELATED MACULAR DEGENERATION
     Dosage: LAST DOSE PRIOR TO SAE: 11/OCT/2013?LEFT EYE
     Route: 050
     Dates: start: 20120911
  2. LEXAURIN [Concomitant]
     Indication: DEPRESSION
     Route: 065
     Dates: start: 2008

REACTIONS (6)
  - Eye haemorrhage [Recovered/Resolved]
  - Iridocyclitis [Not Recovered/Not Resolved]
  - Vitreous haemorrhage [Unknown]
  - Eye pain [Unknown]
  - Visual acuity reduced [Unknown]
  - Eye irritation [Unknown]
